FAERS Safety Report 13709897 (Version 2)
Quarter: 2017Q3

REPORT INFORMATION
  Report Type: Spontaneous
  Country: US (occurrence: US)
  Receive Date: 20170703
  Receipt Date: 20170706
  Transmission Date: 20171127
  Serious: No
  Sender: FDA-Public Use
  Company Number: US-TEVA-782068USA

PATIENT

DRUGS (4)
  1. NUVIGIL [Suspect]
     Active Substance: ARMODAFINIL
     Indication: LETHARGY
  2. NUVIGIL [Suspect]
     Active Substance: ARMODAFINIL
     Indication: DISTURBANCE IN ATTENTION
  3. NUVIGIL [Suspect]
     Active Substance: ARMODAFINIL
     Indication: DEPRESSION
     Dosage: 250 MILLIGRAM DAILY;
  4. NUVIGIL [Suspect]
     Active Substance: ARMODAFINIL
     Indication: FATIGUE

REACTIONS (3)
  - Drug ineffective for unapproved indication [Unknown]
  - Product use in unapproved indication [Unknown]
  - Therapeutic response unexpected [Unknown]
